FAERS Safety Report 5730381-8 (Version None)
Quarter: 2008Q2

REPORT INFORMATION
  Report Type: 
  Country: None (occurrence: None)
  Receive Date: 20080502
  Receipt Date: 20080418
  Transmission Date: 20081010
  Serious: Yes (Life-Threatening, Hospitalization)
  Sender: FDA-Public Use
  Company Number: 2008EU000676

PATIENT
  Age: 54 Year
  Sex: Male
  Weight: 73 kg

DRUGS (7)
  1. PROGRAF [Suspect]
     Indication: LIVER TRANSPLANT
     Dosage: 4 MG, UID,/QD, ORAL
     Route: 048
     Dates: start: 20080310, end: 20080320
  2. ENCORTON (PREDNISONE ACETATE) [Concomitant]
  3. PANTOPRAZOLE SODIUM [Concomitant]
  4. URSO FALK [Concomitant]
  5. BETALOC (METOPROLOL TARTRATE) [Concomitant]
  6. HEVIRAN (ACICLOVIR SODIUM) [Concomitant]
  7. CORDARONE [Concomitant]

REACTIONS (3)
  - ABNORMAL BEHAVIOUR [None]
  - ALTERED STATE OF CONSCIOUSNESS [None]
  - TREMOR [None]
